FAERS Safety Report 18517954 (Version 3)
Quarter: 2020Q4

REPORT INFORMATION
  Report Type: Spontaneous
  Country: JP (occurrence: JP)
  Receive Date: 20201118
  Receipt Date: 20201204
  Transmission Date: 20210114
  Serious: Yes (Hospitalization)
  Sender: FDA-Public Use
  Company Number: JP-IPSEN BIOPHARMACEUTICALS, INC.-2020-17410

PATIENT
  Sex: Male

DRUGS (9)
  1. ONIVYDE [Suspect]
     Active Substance: IRINOTECAN HYDROCHLORIDE
     Indication: PANCREATIC CARCINOMA
     Dosage: 56 MG/M2
     Route: 042
     Dates: start: 20200826, end: 20200826
  2. LEVOFOLINATE YAKULT [Concomitant]
     Active Substance: LEVOLEUCOVORIN CALCIUM
     Dosage: 200 MG/M2
     Route: 042
     Dates: start: 20200917, end: 20200917
  3. 5-FU [Concomitant]
     Active Substance: FLUOROURACIL
     Indication: PANCREATIC CARCINOMA
     Dosage: 2400 MG/M2
     Route: 042
     Dates: start: 20200826, end: 20200827
  4. LEVOFOLINATE YAKULT [Concomitant]
     Active Substance: LEVOLEUCOVORIN CALCIUM
     Dosage: 200 MG/M2
     Route: 042
     Dates: start: 20201015, end: 20201015
  5. 5-FU [Concomitant]
     Active Substance: FLUOROURACIL
     Dosage: 2000 MG/M2
     Route: 042
     Dates: start: 20200917, end: 20200918
  6. 5-FU [Concomitant]
     Active Substance: FLUOROURACIL
     Dosage: 2000 MG/M2
     Route: 042
     Dates: start: 20201015, end: 20201016
  7. LEVOFOLINATE YAKULT [Concomitant]
     Active Substance: LEVOLEUCOVORIN CALCIUM
     Indication: PANCREATIC CARCINOMA
     Dosage: 200 MG/M2
     Route: 042
     Dates: start: 20200826, end: 20200826
  8. ONIVYDE [Suspect]
     Active Substance: IRINOTECAN HYDROCHLORIDE
     Dosage: 78 MG
     Route: 042
     Dates: start: 20200917, end: 20200917
  9. ONIVYDE [Suspect]
     Active Substance: IRINOTECAN HYDROCHLORIDE
     Dosage: 96 MG
     Route: 042
     Dates: start: 20201015, end: 20201015

REACTIONS (8)
  - Metastases to bone [Unknown]
  - Malignant neoplasm progression [Unknown]
  - Anaemia [Unknown]
  - Lymphangiosis carcinomatosa [Unknown]
  - Malaise [Recovered/Resolved]
  - Leukopenia [Recovered/Resolved]
  - Decreased appetite [Recovered/Resolved]
  - Interstitial lung disease [Unknown]

NARRATIVE: CASE EVENT DATE: 2020
